FAERS Safety Report 4680787-3 (Version None)
Quarter: 2005Q2

REPORT INFORMATION
  Report Type: 
  Country: None (occurrence: None)
  Receive Date: 20050601
  Receipt Date: 20050523
  Transmission Date: 20051028
  Serious: Yes (Death, Hospitalization)
  Sender: FDA-Public Use
  Company Number: 2005078979

PATIENT
  Age: 92 Year
  Sex: Male

DRUGS (3)
  1. CARDURA [Suspect]
     Indication: BENIGN PROSTATIC HYPERPLASIA
     Dosage: 4 MG (4 MG, QD), ORAL
     Route: 048
     Dates: start: 19991201, end: 20041227
  2. LOSARTAN POTASSIUM [Concomitant]
  3. METFORMIN HCL [Concomitant]

REACTIONS (1)
  - MOANING [None]
